FAERS Safety Report 7314866-9 (Version None)
Quarter: 2011Q1

REPORT INFORMATION
  Report Type: 
  Country: None (occurrence: None)
  Receive Date: 20110225
  Receipt Date: 20100127
  Transmission Date: 20110831
  Serious: No
  Sender: FDA-Public Use
  Company Number: US-MYLANLABS-2010S1000524

PATIENT
  Age: 50 Year
  Sex: Male
  Weight: 108.9 kg

DRUGS (6)
  1. AMNESTEEM [Suspect]
     Route: 048
     Dates: start: 20090101, end: 20090101
  2. AMNESTEEM [Suspect]
     Route: 048
     Dates: start: 20090101, end: 20091217
  3. AMNESTEEM [Suspect]
     Indication: ROSACEA
     Route: 048
     Dates: start: 20090701, end: 20090101
  4. AMNESTEEM [Suspect]
     Route: 048
     Dates: start: 20090101, end: 20090101
  5. AMNESTEEM [Suspect]
     Route: 048
     Dates: start: 20090101, end: 20091217
  6. AMNESTEEM [Suspect]
     Indication: ACNE
     Route: 048
     Dates: start: 20090701, end: 20090101

REACTIONS (4)
  - DRY SKIN [None]
  - CHEILITIS [None]
  - LIP DRY [None]
  - BLOOD TRIGLYCERIDES INCREASED [None]
